FAERS Safety Report 11447225 (Version 1)
Quarter: 2015Q3

REPORT INFORMATION
  Report Type: Spontaneous
  Country: US (occurrence: US)
  Receive Date: 20150831
  Receipt Date: 20150831
  Transmission Date: 20151125
  Serious: Yes (Other)
  Sender: FDA-Public Use
  Company Number: US-ELI_LILLY_AND_COMPANY-US200812002260

PATIENT
  Age: 43 Year
  Sex: Female
  Weight: 95.24 kg

DRUGS (17)
  1. TOPAMAX [Concomitant]
     Active Substance: TOPIRAMATE
     Dosage: 200 MG, UNK
  2. ATENOLOL. [Concomitant]
     Active Substance: ATENOLOL
     Indication: HYPERTENSION
     Dosage: 75 MG, DAILY (1/D)
  3. ATENOLOL. [Concomitant]
     Active Substance: ATENOLOL
     Dosage: 50 MG, UNK
  4. OXYCODONE [Concomitant]
     Active Substance: OXYCODONE
  5. LANTUS [Concomitant]
     Active Substance: INSULIN GLARGINE
     Indication: DIABETES MELLITUS
     Dosage: 160 U, UNK
  6. FERROUS SULFATE [Concomitant]
     Active Substance: FERROUS SULFATE\FERROUS SULFATE, DRIED
     Dosage: 325 MG, UNK
  7. IBUPROFEN. [Concomitant]
     Active Substance: IBUPROFEN
  8. LISINOPRIL. [Concomitant]
     Active Substance: LISINOPRIL
     Dosage: 25 MG, UNK
  9. ATIVAN [Concomitant]
     Active Substance: LORAZEPAM
     Dosage: 1 MG, AS NEEDED
  10. METFORMIN [Concomitant]
     Active Substance: METFORMIN HYDROCHLORIDE
     Indication: DIABETES MELLITUS
     Dosage: 1000 MG, UNK
  11. ASPIRIN. [Concomitant]
     Active Substance: ASPIRIN
     Dosage: 81 MG, UNK
  12. DURAGESIC [Concomitant]
     Active Substance: FENTANYL
     Dosage: 100 MG, UNK
  13. ZOCOR [Concomitant]
     Active Substance: SIMVASTATIN
     Indication: HYPERLIPIDAEMIA
     Dosage: 80 MG, UNK
  14. AVINZA [Concomitant]
     Active Substance: MORPHINE SULFATE
     Dosage: 30 MG, UNK
  15. CYMBALTA [Suspect]
     Active Substance: DULOXETINE HYDROCHLORIDE
     Indication: DIABETIC NEUROPATHY
     Dosage: 90 MG, 2/D
     Dates: end: 200810
  16. SINGULAIR [Concomitant]
     Active Substance: MONTELUKAST SODIUM
     Indication: ASTHMA
     Dosage: 10 MG, DAILY (1/D)
  17. PRILOSEC [Concomitant]
     Active Substance: OMEPRAZOLE MAGNESIUM
     Dosage: 20 MG, DAILY (1/D)

REACTIONS (5)
  - Confusional state [Unknown]
  - Hallucination [Unknown]
  - Suicidal behaviour [Unknown]
  - Prescribed overdose [Unknown]
  - Feeling abnormal [Unknown]

NARRATIVE: CASE EVENT DATE: 20081021
